FAERS Safety Report 21681451 (Version 4)
Quarter: 2024Q4

REPORT INFORMATION
  Report Type: Report from Study
  Country: US (occurrence: US)
  Receive Date: 20221205
  Receipt Date: 20241017
  Transmission Date: 20250115
  Serious: No
  Sender: NOVARTIS
  Company Number: US-002147023-NVSC2022US279425

PATIENT
  Sex: Female

DRUGS (7)
  1. KESIMPTA [Suspect]
     Active Substance: OFATUMUMAB
     Indication: Multiple sclerosis
     Dosage: 20 MG, QMO (INJECT 1 PEN) (MONTHY STARTING AT WEEK 4 AS DIRECTED)
     Route: 058
     Dates: start: 202205, end: 202210
  2. BUSPIRONE HYDROCHLORIDE [Concomitant]
     Active Substance: BUSPIRONE HYDROCHLORIDE
     Indication: Product used for unknown indication
     Dosage: UNK
     Route: 065
  3. VITAMIN D NOS [Concomitant]
     Active Substance: CHOLECALCIFEROL\ERGOCALCIFEROL
     Indication: Product used for unknown indication
     Dosage: UNK
     Route: 065
  4. VITAMIN B12 [Concomitant]
     Active Substance: CYANOCOBALAMIN
     Indication: Product used for unknown indication
     Dosage: UNK
     Route: 065
  5. BACLOFEN;HYDROMORPHONE HYDROCHLORIDE [Concomitant]
     Indication: Product used for unknown indication
     Dosage: UNK
     Route: 065
  6. CRANBERRY [Concomitant]
     Active Substance: CRANBERRY
     Indication: Product used for unknown indication
     Dosage: UNK
     Route: 065
  7. ALPHA LIPOIC ACID [Concomitant]
     Active Substance: .ALPHA.-LIPOIC ACID
     Indication: Product used for unknown indication
     Dosage: UNK
     Route: 065

REACTIONS (3)
  - Mobility decreased [Recovered/Resolved with Sequelae]
  - Bladder disorder [Unknown]
  - Drug intolerance [Unknown]
